FAERS Safety Report 7791492-9 (Version None)
Quarter: 2011Q4

REPORT INFORMATION
  Report Type: 
  Country: None (occurrence: None)
  Receive Date: 20111003
  Receipt Date: 20110928
  Transmission Date: 20120403
  Serious: Yes (Life-Threatening, Hospitalization)
  Sender: FDA-Public Use
  Company Number: DE-JNJFOC-20110912129

PATIENT
  Sex: Female
  Weight: 80 kg

DRUGS (5)
  1. SEROQUEL [Concomitant]
     Indication: PSYCHOTIC DISORDER
     Route: 048
  2. MIRTAZAPINE [Concomitant]
     Indication: DEPRESSION
     Route: 048
  3. RISPERDAL CONSTA [Suspect]
     Indication: PSYCHOTIC DISORDER
     Route: 030
  4. ZOPICLON [Interacting]
     Indication: SLEEP DISORDER
     Route: 048
  5. MIRTAZAPINE [Concomitant]
     Indication: PSYCHOTIC DISORDER
     Route: 048

REACTIONS (3)
  - BASAL GANGLIA INFARCTION [None]
  - HEMIPARESIS [None]
  - DRUG INTERACTION [None]
